FAERS Safety Report 17338705 (Version 3)
Quarter: 2022Q1

REPORT INFORMATION
  Report Type: Report from Study
  Country: JP (occurrence: JP)
  Receive Date: 20200129
  Receipt Date: 20220214
  Transmission Date: 20220424
  Serious: Yes (Death, Hospitalization)
  Sender: FDA-Public Use
  Company Number: JP-NOVARTISPH-NVSJ2020JP000717

PATIENT
  Age: 62 Year
  Sex: Male

DRUGS (18)
  1. ELTROMBOPAG OLAMINE [Suspect]
     Active Substance: ELTROMBOPAG OLAMINE
     Indication: Aplastic anaemia
     Dosage: 25 MG
     Route: 048
     Dates: start: 20181005, end: 20181018
  2. ELTROMBOPAG OLAMINE [Suspect]
     Active Substance: ELTROMBOPAG OLAMINE
     Dosage: 50 MG
     Route: 048
     Dates: start: 20181019, end: 20181101
  3. ELTROMBOPAG OLAMINE [Suspect]
     Active Substance: ELTROMBOPAG OLAMINE
     Dosage: 75 MG
     Route: 048
     Dates: start: 20181102, end: 20181113
  4. ELTROMBOPAG OLAMINE [Suspect]
     Active Substance: ELTROMBOPAG OLAMINE
     Dosage: 100 MG
     Route: 048
     Dates: start: 20181114, end: 20190522
  5. NEORAL [Suspect]
     Active Substance: CYCLOSPORINE
     Indication: Aplastic anaemia
     Dosage: 400 MG
     Route: 048
     Dates: start: 20180615, end: 20181004
  6. NEORAL [Suspect]
     Active Substance: CYCLOSPORINE
     Dosage: 100 MG
     Route: 048
     Dates: start: 20181005, end: 20190522
  7. HUMAN RED BLOOD CELL [Concomitant]
     Active Substance: HUMAN RED BLOOD CELL
     Indication: Product used for unknown indication
     Dosage: 1120 ML
     Route: 042
     Dates: start: 20181005, end: 20181101
  8. HUMAN RED BLOOD CELL [Concomitant]
     Active Substance: HUMAN RED BLOOD CELL
     Dosage: 840 ML
     Route: 042
     Dates: start: 20181102, end: 20181129
  9. HUMAN RED BLOOD CELL [Concomitant]
     Active Substance: HUMAN RED BLOOD CELL
     Dosage: 1120 ML, 4 TIMES/MONTH
     Route: 042
     Dates: start: 20181130, end: 20181227
  10. HUMAN RED BLOOD CELL [Concomitant]
     Active Substance: HUMAN RED BLOOD CELL
     Dosage: 1400 ML, 5 TIMES/MONTH
     Route: 042
     Dates: start: 20181228, end: 20190124
  11. HUMAN RED BLOOD CELL [Concomitant]
     Active Substance: HUMAN RED BLOOD CELL
     Dosage: 1120 ML, 4 TIMES/MONTH
     Route: 042
     Dates: start: 20190125, end: 20190221
  12. HUMAN RED BLOOD CELL [Concomitant]
     Active Substance: HUMAN RED BLOOD CELL
     Dosage: 1400 ML, 5 TIMES/MONTH
     Route: 042
     Dates: start: 20190222, end: 20190321
  13. HUMAN RED BLOOD CELL [Concomitant]
     Active Substance: HUMAN RED BLOOD CELL
     Dosage: 1680 ML, 6 TIMES/MONTH
     Route: 042
     Dates: start: 20190322, end: 20190420
  14. HUMAN RED BLOOD CELL [Concomitant]
     Active Substance: HUMAN RED BLOOD CELL
     Dosage: 1120 ML, 4 TIMES/MONTH
     Route: 042
     Dates: start: 20190421, end: 20190516
  15. HUMAN RED BLOOD CELL [Concomitant]
     Active Substance: HUMAN RED BLOOD CELL
     Dosage: 560 ML, TWICE A MONTH
     Route: 042
     Dates: start: 20190517, end: 20190613
  16. PLATELETS [Concomitant]
     Active Substance: HUMAN PLATELET, ALLOGENIC
     Indication: Product used for unknown indication
     Dosage: 400 ML, 2 TIMES/MONTH
     Route: 042
     Dates: start: 20190222, end: 20190321
  17. PLATELETS [Concomitant]
     Active Substance: HUMAN PLATELET, ALLOGENIC
     Dosage: 200 ML, ONCE A MONTH
     Route: 042
     Dates: start: 20190322, end: 20190420
  18. PLATELETS [Concomitant]
     Active Substance: HUMAN PLATELET, ALLOGENIC
     Dosage: 200 ML, ONCE A MONTH
     Route: 042
     Dates: start: 20190517, end: 20190613

REACTIONS (3)
  - Aplastic anaemia [Fatal]
  - Condition aggravated [Fatal]
  - White blood cell count decreased [Recovering/Resolving]

NARRATIVE: CASE EVENT DATE: 20190222
